FAERS Safety Report 7669004-X (Version None)
Quarter: 2011Q3

REPORT INFORMATION
  Report Type: 
  Country: None (occurrence: None)
  Receive Date: 20110808
  Receipt Date: 20110801
  Transmission Date: 20111222
  Serious: Yes (Hospitalization, Other)
  Sender: FDA-Public Use
  Company Number: US-BAYER-2011-069489

PATIENT
  Age: 15 Year
  Weight: 59 kg

DRUGS (5)
  1. YASMIN [Suspect]
     Indication: ACNE
  2. YASMIN [Suspect]
     Indication: ORAL CONTRACEPTION
     Dosage: UNK
     Dates: start: 20030101, end: 20070101
  3. NAPROXEN (ALEVE) [Concomitant]
  4. IBUPROFEN [Concomitant]
  5. ADDERALL 5 [Concomitant]

REACTIONS (7)
  - ABDOMINAL DISTENSION [None]
  - CHOLECYSTECTOMY [None]
  - ABDOMINAL PAIN UPPER [None]
  - ABDOMINAL PAIN [None]
  - HYPERHIDROSIS [None]
  - CHOLECYSTITIS CHRONIC [None]
  - COLITIS [None]
